FAERS Safety Report 14441674 (Version 5)
Quarter: 2020Q2

REPORT INFORMATION
  Report Type: Spontaneous
  Country: US (occurrence: US)
  Receive Date: 20180125
  Receipt Date: 20200506
  Transmission Date: 20200713
  Serious: Yes (Other)
  Sender: FDA-Public Use
  Company Number: US-PFIZER INC-2018024961

PATIENT
  Age: 74 Year
  Sex: Female
  Weight: 105 kg

DRUGS (7)
  1. FLECAINIDE [Concomitant]
     Active Substance: FLECAINIDE
     Indication: ATRIAL FIBRILLATION
     Dosage: 1 DF, 2X/DAY (1 TAB, BID)
     Route: 048
  2. ATENOLOL. [Concomitant]
     Active Substance: ATENOLOL
     Indication: BLOOD PRESSURE MEASUREMENT
     Dosage: 1 DF, 2X/DAY (1 TAB, BID)
     Route: 048
  3. ELIQUIS [Suspect]
     Active Substance: APIXABAN
     Indication: CEREBROVASCULAR ACCIDENT PROPHYLAXIS
     Dosage: 1 DF, 2X/DAY (1 TAB, BID)
     Route: 048
  4. LISINOPRIL. [Concomitant]
     Active Substance: LISINOPRIL
     Indication: BLOOD PRESSURE MEASUREMENT
     Dosage: 1 DF, 1X/DAY (1 TAB, QD)
     Route: 048
  5. REVATIO [Suspect]
     Active Substance: SILDENAFIL CITRATE
     Dosage: 20 MG, 3X/DAY [TAKE 1.5 TABS (20 MG TOTAL) EVERY 8 HOURS]
  6. AMLODIPINE [Concomitant]
     Active Substance: AMLODIPINE BESYLATE
     Indication: BLOOD PRESSURE MEASUREMENT
     Dosage: 1 DF, 1X/DAY (1 TAB, QD)
     Route: 048
  7. REVATIO [Suspect]
     Active Substance: SILDENAFIL CITRATE
     Indication: PULMONARY HYPERTENSION
     Dosage: 1 DF, 3X/DAY (1 DF, TID) (1 DF = ONE AND HALF TABLET)
     Route: 048
     Dates: end: 20180115

REACTIONS (3)
  - Off label use [Unknown]
  - Arthropathy [Unknown]
  - Product use issue [Unknown]
